FAERS Safety Report 5961238-5 (Version None)
Quarter: 2008Q4

REPORT INFORMATION
  Report Type: 
  Country: None (occurrence: None)
  Receive Date: 20081121
  Receipt Date: 20081107
  Transmission Date: 20090506
  Serious: Yes (Other)
  Sender: FDA-Public Use
  Company Number: PHNU2008DE02018

PATIENT
  Sex: Male
  Weight: 91 kg

DRUGS (5)
  1. LEPONEX [Suspect]
     Dosage: UP TO 475 MG/DAY
     Route: 048
     Dates: start: 20080303
  2. RISPERDAL [Suspect]
     Indication: PSYCHOTIC DISORDER
     Dosage: 6 MG
     Route: 048
     Dates: start: 20080204
  3. METOPROLOL SUCCINATE [Suspect]
     Indication: TACHYCARDIA
     Dosage: UNK
     Route: 048
     Dates: start: 20080515
  4. GASTROZEPIN [Suspect]
     Indication: SALIVARY HYPERSECRETION
     Dosage: 50 MG
     Route: 048
     Dates: start: 20080325
  5. RISPERIDONE [Concomitant]

REACTIONS (10)
  - BLOOD CHOLESTEROL INCREASED [None]
  - BLOOD TRIGLYCERIDES INCREASED [None]
  - ELECTROCARDIOGRAM ABNORMAL [None]
  - FATIGUE [None]
  - PERICARDIAL EFFUSION [None]
  - PLEURAL EFFUSION [None]
  - POLYSEROSITIS [None]
  - TACHYCARDIA [None]
  - ULTRASOUND SCAN ABNORMAL [None]
  - WEIGHT INCREASED [None]
